FAERS Safety Report 13572115 (Version 3)
Quarter: 2018Q2

REPORT INFORMATION
  Report Type: Report from Study
  Country: US (occurrence: US)
  Receive Date: 20170523
  Receipt Date: 20180426
  Transmission Date: 20180711
  Serious: Yes (Hospitalization)
  Sender: FDA-Public Use
  Company Number: PHHO2017US008155

PATIENT
  Age: 66 Year
  Sex: Female
  Weight: 73.7 kg

DRUGS (7)
  1. ACZ885 [Suspect]
     Active Substance: CANAKINUMAB
     Indication: CARDIOVASCULAR EVENT PROPHYLAXIS
     Dosage: 150 MG, Q3MO
     Route: 058
  2. INSULIN DETEMIR [Concomitant]
     Active Substance: INSULIN DETEMIR
     Indication: TYPE 2 DIABETES MELLITUS
     Dosage: 20 U, BID
     Route: 058
     Dates: start: 20160621, end: 20170503
  3. INSULIN DETEMIR [Concomitant]
     Active Substance: INSULIN DETEMIR
     Dosage: UNK
     Route: 058
     Dates: start: 20170508
  4. ARICEPT [Concomitant]
     Active Substance: DONEPEZIL HYDROCHLORIDE
     Indication: MENTAL STATUS CHANGES
     Dosage: 5 MG, QD
     Route: 048
     Dates: start: 20180220
  5. INSULIN LISPRO [Concomitant]
     Active Substance: INSULIN LISPRO
     Indication: TYPE 2 DIABETES MELLITUS
     Dosage: 30 U, TID
     Route: 058
     Dates: start: 20160324, end: 20170503
  6. ILARIS [Suspect]
     Active Substance: CANAKINUMAB
     Indication: CARDIOVASCULAR EVENT PROPHYLAXIS
     Dosage: 50 MG, UNK
     Route: 058
  7. HALDOL [Concomitant]
     Active Substance: HALOPERIDOL
     Indication: MENTAL STATUS CHANGES
     Dosage: 1 MG, QD
     Route: 058
     Dates: start: 20180220

REACTIONS (3)
  - Encephalopathy [Recovered/Resolved]
  - Viral infection [Recovered/Resolved]
  - Infectious colitis [Recovered/Resolved]

NARRATIVE: CASE EVENT DATE: 20170503
